FAERS Safety Report 22021655 (Version 1)
Quarter: 2023Q1

REPORT INFORMATION
  Report Type: Spontaneous
  Country: DE (occurrence: DE)
  Receive Date: 20230222
  Receipt Date: 20230222
  Transmission Date: 20230418
  Serious: Yes (Other)
  Sender: FDA-Public Use
  Company Number: DE-ROCHE-3225605

PATIENT
  Sex: Female
  Weight: 58 kg

DRUGS (2)
  1. CEFTRIAXONE [Interacting]
     Active Substance: CEFTRIAXONE
     Indication: Antibiotic prophylaxis
     Dosage: 2 G IN 100 ML WATER FOR INJECTION
     Route: 042
  2. CAFEDRINE HYDROCHLORIDE\THEODRENALINE [Interacting]
     Active Substance: CAFEDRINE HYDROCHLORIDE\THEODRENALINE
     Indication: Hypotension
     Dosage: 1 DOSAGE FORM (2 ML THEODRENALINE/CAFEDRINE PLUS 8 ML NACL 0.9 PERCENT)
     Route: 042

REACTIONS (2)
  - Drug interaction [Unknown]
  - Circumstance or information capable of leading to medication error [Unknown]
